FAERS Safety Report 10016707 (Version 1)
Quarter: 2014Q1

REPORT INFORMATION
  Report Type: Report from Study
  Country: NL (occurrence: NL)
  Receive Date: 20140318
  Receipt Date: 20140318
  Transmission Date: 20141002
  Serious: Yes (Death)
  Sender: FDA-Public Use
  Company Number: PHHY2014NL031638

PATIENT
  Age: 73 Year
  Sex: Male

DRUGS (4)
  1. IPRAMOL [Concomitant]
     Dosage: UNK
  2. SERETIDE [Concomitant]
     Dosage: UNK
  3. SPIRIVA [Concomitant]
     Dosage: UNK
  4. TOBI PODHALER [Suspect]
     Indication: BRONCHIECTASIS
     Dosage: UNK, 28 DAYS SCHEDULE

REACTIONS (1)
  - Death [Fatal]
